FAERS Safety Report 9730390 (Version 1)
Quarter: 2013Q4

REPORT INFORMATION
  Report Type: Spontaneous
  Country: JP (occurrence: JP)
  Receive Date: 20131204
  Receipt Date: 20131204
  Transmission Date: 20140711
  Serious: Yes (Other)
  Sender: FDA-Public Use
  Company Number: JP-ROCHE-1313948

PATIENT
  Age: 67 Year
  Sex: Male

DRUGS (9)
  1. RITUXIMAB [Suspect]
     Indication: B-CELL LYMPHOMA
     Route: 065
  2. RITUXIMAB [Suspect]
     Indication: DIFFUSE LARGE B-CELL LYMPHOMA
  3. CYCLOPHOSPHAMIDE [Concomitant]
     Indication: B-CELL LYMPHOMA
  4. DOXORUBICIN HYDROCHLORIDE [Concomitant]
     Indication: B-CELL LYMPHOMA
  5. VINCRISTINE SULFATE [Concomitant]
     Indication: B-CELL LYMPHOMA
  6. PREDNISOLONE [Concomitant]
     Indication: B-CELL LYMPHOMA
  7. IFOSFAMIDE [Concomitant]
     Indication: DIFFUSE LARGE B-CELL LYMPHOMA
  8. CARBOPLATIN [Concomitant]
     Indication: DIFFUSE LARGE B-CELL LYMPHOMA
  9. ETOPOSIDE [Concomitant]
     Indication: DIFFUSE LARGE B-CELL LYMPHOMA

REACTIONS (1)
  - Myelodysplastic syndrome [Recovering/Resolving]
